FAERS Safety Report 11684359 (Version 5)
Quarter: 2016Q1

REPORT INFORMATION
  Report Type: Report from Study
  Country: IE (occurrence: IE)
  Receive Date: 20151029
  Receipt Date: 20160314
  Transmission Date: 20160525
  Serious: Yes (Hospitalization, Other)
  Sender: FDA-Public Use
  Company Number: IE-ABBVIE-15P-229-1482451-00

PATIENT
  Age: 62 Year
  Sex: Male

DRUGS (1)
  1. DUODOPA [Suspect]
     Active Substance: CARBIDOPA\LEVODOPA
     Indication: PARKINSON^S DISEASE
     Dosage: MD 11.5ML, CD 2ML/HR
     Route: 050

REACTIONS (8)
  - Stoma site cellulitis [Recovered/Resolved]
  - Device dislocation [Recovered/Resolved]
  - Device connection issue [Recovered/Resolved]
  - Stoma site candida [Recovered/Resolved]
  - Stoma site inflammation [Unknown]
  - Device connection issue [Recovered/Resolved]
  - Stoma site pain [Recovered/Resolved]
  - Stoma site infection [Recovered/Resolved]

NARRATIVE: CASE EVENT DATE: 201510
